FAERS Safety Report 9610942 (Version 3)
Quarter: 2014Q1

REPORT INFORMATION
  Report Type: Report from Study
  Country: US (occurrence: US)
  Receive Date: 20131009
  Receipt Date: 20140312
  Transmission Date: 20141002
  Serious: Yes (Other)
  Sender: FDA-Public Use
  Company Number: US-ROCHE-1283243

PATIENT
  Age: 51 Year
  Sex: Female

DRUGS (10)
  1. AVASTIN [Suspect]
     Indication: DIABETIC RETINAL OEDEMA
     Route: 050
     Dates: start: 201203, end: 20130802
  2. AVASTIN [Suspect]
     Indication: OFF LABEL USE
  3. LUCENTIS [Suspect]
     Indication: DIABETIC RETINAL OEDEMA
     Route: 065
     Dates: start: 20130927, end: 20131213
  4. CEPHALEXINE [Concomitant]
  5. LANTUS [Concomitant]
  6. GLUCOPHAGE [Concomitant]
  7. MELATONIN [Concomitant]
  8. BENADRYL (UNITED STATES) [Concomitant]
  9. IBUPROFEN [Concomitant]
  10. NAPROXEN [Concomitant]

REACTIONS (19)
  - Retinal detachment [Recovered/Resolved]
  - Eye pruritus [Unknown]
  - Vision blurred [Unknown]
  - Photopsia [Unknown]
  - Dry eye [Unknown]
  - Malaise [Unknown]
  - Thrombosis [Recovered/Resolved]
  - Fatigue [Recovered/Resolved]
  - Pyrexia [Recovered/Resolved]
  - Chills [Recovered/Resolved]
  - Arthralgia [Recovered/Resolved]
  - Sinus disorder [Recovered/Resolved]
  - Nasal disorder [Recovered/Resolved]
  - Cough [Not Recovered/Not Resolved]
  - Pulmonary congestion [Not Recovered/Not Resolved]
  - Nervousness [Recovered/Resolved]
  - Anxiety [Recovered/Resolved]
  - Eye contusion [Unknown]
  - Eye pain [Unknown]
